FAERS Safety Report 5763825-6 (Version None)
Quarter: 2008Q2

REPORT INFORMATION
  Report Type: 
  Country: None (occurrence: None)
  Receive Date: 20080602
  Receipt Date: 20080311
  Transmission Date: 20081010
  Serious: Yes (Hospitalization)
  Sender: FDA-Public Use
  Company Number: PHEH2008US01528

PATIENT
  Age: 86 Year
  Sex: Female
  Weight: 50.8 kg

DRUGS (6)
  1. TEKTURNA [Suspect]
     Indication: HYPERTENSION
     Dosage: 150 MG, QD, ORAL
     Route: 048
     Dates: start: 20071226, end: 20080114
  2. DIOVAN HCT [Concomitant]
  3. COREG [Concomitant]
  4. DURAGESIC-100 [Concomitant]
  5. PERCOCET [Concomitant]
  6. ASPIRIN [Concomitant]

REACTIONS (4)
  - ACCIDENTAL EXPOSURE [None]
  - FACE OEDEMA [None]
  - GENERALISED OEDEMA [None]
  - OEDEMA PERIPHERAL [None]
